FAERS Safety Report 5160294-4 (Version None)
Quarter: 2006Q4

REPORT INFORMATION
  Report Type: 
  Country: None (occurrence: None)
  Receive Date: 20061129
  Receipt Date: 20061122
  Transmission Date: 20070319
  Serious: Yes (Death, Hospitalization)
  Sender: FDA-Public Use
  Company Number: FR-GLAXOSMITHKLINE-B0448191A

PATIENT
  Age: 44 Year
  Sex: Female

DRUGS (2)
  1. ARIXTRA [Suspect]
     Indication: DEEP VEIN THROMBOSIS
     Dosage: 7.5MG SINGLE DOSE
     Route: 058
  2. CONTRACEPTIVE [Concomitant]
     Route: 048

REACTIONS (4)
  - CARDIAC ARREST [None]
  - COMA [None]
  - FALL [None]
  - PULMONARY EMBOLISM [None]
